FAERS Safety Report 9903234 (Version 1)
Quarter: 2014Q1

REPORT INFORMATION
  Report Type: Spontaneous
  Country: US (occurrence: US)
  Receive Date: 20140217
  Receipt Date: 20140217
  Transmission Date: 20141002
  Serious: No
  Sender: FDA-Public Use
  Company Number: US-ASTRAZENECA-2013SE77318

PATIENT
  Age: 88 Year
  Sex: Female
  Weight: 68 kg

DRUGS (14)
  1. ATENOLOL [Suspect]
     Indication: BLOOD PRESSURE
     Route: 048
  2. OMEPRAZOLE [Suspect]
     Indication: DYSPHAGIA
     Route: 048
     Dates: start: 2010
  3. SEROQUEL XR [Suspect]
     Indication: DEPRESSION
     Route: 048
     Dates: start: 201306, end: 201309
  4. SEROQUEL XR [Suspect]
     Indication: DEPRESSION
     Route: 048
     Dates: start: 201309
  5. DIOVAN HCT [Concomitant]
     Indication: BLOOD PRESSURE
     Dosage: 100/ 25 MG DAILY
     Route: 048
  6. SIMVASTATIN [Concomitant]
     Indication: BLOOD PRESSURE
     Route: 048
  7. KLOR-CON [Concomitant]
     Route: 048
  8. TRAVISTAN [Concomitant]
     Indication: GLAUCOMA
     Route: 050
  9. ASPIRIN [Concomitant]
     Route: 048
  10. VITAMIN B-12 [Concomitant]
     Route: 048
  11. FLAX SEED OIL [Concomitant]
     Route: 048
  12. TYLENOL ARTHRITIS [Concomitant]
     Indication: PAIN
     Dosage: PRN
     Route: 048
  13. TRAMADOL [Concomitant]
     Indication: PAIN
     Dosage: PRN
     Route: 048
  14. SOOTHE SALVE [Concomitant]
     Indication: PAIN
     Dosage: PRN
     Route: 061

REACTIONS (4)
  - Dementia [Not Recovered/Not Resolved]
  - Hypotension [Not Recovered/Not Resolved]
  - Drug ineffective for unapproved indication [Not Recovered/Not Resolved]
  - Off label use [Not Recovered/Not Resolved]
